FAERS Safety Report 6111130-0 (Version None)
Quarter: 2009Q1

REPORT INFORMATION
  Report Type: 
  Country: None (occurrence: None)
  Receive Date: 20090309
  Receipt Date: 20090309
  Transmission Date: 20090719
  Serious: Yes (Life-Threatening)
  Sender: FDA-Public Use
  Company Number: None

PATIENT
  Age: 62 Year
  Sex: Male
  Weight: 98.8842 kg

DRUGS (17)
  1. TRICOR [Suspect]
     Indication: HIGH DENSITY LIPOPROTEIN DECREASED
     Dates: start: 20070222, end: 20090301
  2. CRESTOR [Concomitant]
  3. ASPIRIN [Concomitant]
  4. . [Concomitant]
  5. NEXIUM [Concomitant]
  6. WEL0.BUTRIN [Concomitant]
  7. FLOMAX [Concomitant]
  8. LISINOPRIL [Concomitant]
  9. CELEXA [Concomitant]
  10. ZETIA [Concomitant]
  11. CAVERJECT [Concomitant]
  12. VALTREX [Concomitant]
  13. PLETAL [Concomitant]
  14. AVODART [Concomitant]
  15. SYMBICORT [Concomitant]
  16. BYSTOLIC [Concomitant]
  17. ULTRACET [Concomitant]

REACTIONS (1)
  - PANCREATITIS ACUTE [None]
